FAERS Safety Report 8547322-0 (Version None)
Quarter: 2012Q3

REPORT INFORMATION
  Report Type: 
  Country: None (occurrence: None)
  Receive Date: 20120727
  Receipt Date: 20120319
  Transmission Date: 20120928
  Serious: No
  Sender: FDA-Public Use
  Company Number: US-ASTRAZENECA-2012SE18699

PATIENT
  Age: 75 Year
  Sex: Female
  Weight: 59 kg

DRUGS (9)
  1. VITAMIN B6 [Concomitant]
  2. ASCORBIC ACID [Concomitant]
  3. SEROQUEL [Suspect]
     Indication: DEPRESSION
     Route: 048
     Dates: start: 20120309
  4. VITAMIN B-12 [Concomitant]
  5. COENZYME Q10 [Concomitant]
  6. FISH OIL OMEGA 3 [Concomitant]
  7. TRIPLE FLEX GLUCOSAMINE [Concomitant]
  8. CALCIUM CALTRATE [Concomitant]
  9. MULTI-VITAMINS [Concomitant]

REACTIONS (13)
  - ANXIETY [None]
  - ARTHRITIS [None]
  - FEAR [None]
  - HEADACHE [None]
  - ABNORMAL DREAMS [None]
  - ANTISOCIAL BEHAVIOUR [None]
  - DEPRESSED MOOD [None]
  - WEIGHT DECREASED [None]
  - MEMORY IMPAIRMENT [None]
  - CONFUSIONAL STATE [None]
  - DRY SKIN [None]
  - VASODILATATION [None]
  - DYSGEUSIA [None]
